FAERS Safety Report 4446535-7 (Version None)
Quarter: 2004Q3

REPORT INFORMATION
  Report Type: 
  Country: None (occurrence: None)
  Receive Date: 20040908
  Receipt Date: 20040819
  Transmission Date: 20050211
  Serious: Yes (Hospitalization)
  Sender: FDA-Public Use
  Company Number: 2004229510FR

PATIENT
  Age: 50 Year
  Sex: Female

DRUGS (6)
  1. SOLU-MEDROL [Suspect]
     Dosage: IV
     Route: 042
     Dates: start: 20030513, end: 20030513
  2. RANITIDINE HYDROCHLORIDE [Suspect]
     Dosage: IV
     Route: 042
     Dates: start: 20030513, end: 20030513
  3. CISPLATIN [Suspect]
     Indication: CHEMOTHERAPY
     Dosage: 160 MG, IV
     Route: 042
     Dates: start: 20030513, end: 20030513
  4. PACLITAXEL [Suspect]
     Indication: CHEMOTHERAPY
     Dosage: 250 MG, QD, IV
     Route: 042
     Dates: start: 20030513, end: 20030513
  5. POLARAMINE [Suspect]
     Dosage: 5 MG, IV
     Route: 042
     Dates: start: 20030513, end: 20030513
  6. ONDANSETRON HYDROCHLORIDE [Suspect]
     Dosage: 1 DF, IV
     Route: 042
     Dates: start: 20030513, end: 20030513

REACTIONS (4)
  - AREFLEXIA [None]
  - DEAFNESS [None]
  - PARAESTHESIA [None]
  - POLYNEUROPATHY [None]
